FAERS Safety Report 10746945 (Version 3)
Quarter: 2015Q3

REPORT INFORMATION
  Report Type: Spontaneous
  Country: US (occurrence: US)
  Receive Date: 20150129
  Receipt Date: 20150918
  Transmission Date: 20151125
  Serious: Yes (Death)
  Sender: FDA-Public Use
  Company Number: US-PAR PHARMACEUTICAL, INC-2015SCPR009896

PATIENT
  Age: 22 Year
  Sex: Female

DRUGS (3)
  1. HYPOCHLORITE [Suspect]
     Active Substance: HYPOCHLORITE ION
     Indication: PRODUCT USED FOR UNKNOWN INDICATION
     Dosage: UNK, UNKNOWN
     Route: 048
  2. CLONAZEPAM. [Suspect]
     Active Substance: CLONAZEPAM
     Indication: PRODUCT USED FOR UNKNOWN INDICATION
     Dosage: UNK, UNKNOWN
     Route: 048
  3. METOPROLOL [Suspect]
     Active Substance: METOPROLOL
     Indication: PRODUCT USED FOR UNKNOWN INDICATION
     Dosage: UNK, UNKNOWN
     Route: 048

REACTIONS (5)
  - Completed suicide [Fatal]
  - Cardio-respiratory arrest [Fatal]
  - Death [Fatal]
  - Cardiac arrest [None]
  - Respiratory arrest [None]

NARRATIVE: CASE EVENT DATE: 2013
